FAERS Safety Report 9591982 (Version 2)
Quarter: 2013Q4

REPORT INFORMATION
  Report Type: Spontaneous
  Country: DE (occurrence: DE)
  Receive Date: 20131004
  Receipt Date: 20131023
  Transmission Date: 20140711
  Serious: Yes (Other)
  Sender: FDA-Public Use
  Company Number: DE-ROCHE-1284129

PATIENT
  Age: 55 Year
  Sex: Female
  Weight: 93 kg

DRUGS (11)
  1. MABTHERA [Suspect]
     Indication: RHEUMATOID ARTHRITIS
     Route: 042
     Dates: start: 20130307, end: 20130307
  2. MABTHERA [Suspect]
     Route: 042
     Dates: start: 20130321, end: 20130321
  3. TAVEGIL [Concomitant]
     Indication: PREMEDICATION
     Route: 042
     Dates: start: 20130307, end: 20130307
  4. TAVEGIL [Concomitant]
     Route: 042
     Dates: start: 20130321, end: 20130321
  5. RANITIDIN [Concomitant]
     Indication: PREMEDICATION
     Route: 042
     Dates: start: 20130307, end: 20130307
  6. RANITIDIN [Concomitant]
     Route: 042
     Dates: start: 20130321, end: 20130321
  7. PREDNISOLON [Concomitant]
     Indication: PREMEDICATION
     Route: 042
     Dates: start: 20130307, end: 20130307
  8. PREDNISOLON [Concomitant]
     Route: 042
     Dates: start: 20130321, end: 20130321
  9. NACL .9% [Concomitant]
     Indication: PREMEDICATION
     Route: 042
     Dates: start: 20130307, end: 20130307
  10. NACL .9% [Concomitant]
     Route: 042
     Dates: start: 20130321, end: 20130321
  11. LEFLUNOMIDE [Concomitant]

REACTIONS (3)
  - Chills [Recovered/Resolved]
  - Throat tightness [Recovered/Resolved]
  - Nausea [Recovered/Resolved]
